FAERS Safety Report 8532440 (Version 18)
Quarter: 2017Q2

REPORT INFORMATION
  Report Type: Spontaneous
  Country: US (occurrence: US)
  Receive Date: 20120426
  Receipt Date: 20170412
  Transmission Date: 20170830
  Serious: Yes (Hospitalization, Other)
  Sender: FDA-Public Use
  Company Number: US-GLAXOSMITHKLINE-A0975015A

PATIENT
  Age: 42 Year
  Sex: Female

DRUGS (16)
  1. FLOLAN [Suspect]
     Active Substance: EPOPROSTENOL SODIUM
     Dosage: UNK
  2. FLOLAN [Suspect]
     Active Substance: EPOPROSTENOL SODIUM
     Indication: PULMONARY HYPERTENSION
     Dosage: UNK
     Route: 042
     Dates: start: 20080924
  3. FLOLAN [Suspect]
     Active Substance: EPOPROSTENOL SODIUM
     Dosage: 20 DF, CO
     Route: 042
  4. FLOLAN [Suspect]
     Active Substance: EPOPROSTENOL SODIUM
     Dosage: UNK
  5. FLOLAN [Suspect]
     Active Substance: EPOPROSTENOL SODIUM
     Dosage: 20 DF, CO
     Dates: start: 20080924
  6. FLOLAN [Suspect]
     Active Substance: EPOPROSTENOL SODIUM
     Dosage: 20 DF, CO
     Route: 042
  7. REVATIO [Concomitant]
     Active Substance: SILDENAFIL CITRATE
  8. FLOLAN [Suspect]
     Active Substance: EPOPROSTENOL SODIUM
     Indication: PULMONARY HYPERTENSION
     Dosage: UNK
  9. FLOLAN [Suspect]
     Active Substance: EPOPROSTENOL SODIUM
     Dosage: 20 DF, CO
  10. SILDENAFIL CITRATE. [Concomitant]
     Active Substance: SILDENAFIL CITRATE
  11. WARFARIN [Concomitant]
     Active Substance: WARFARIN
  12. FLOLAN [Suspect]
     Active Substance: EPOPROSTENOL SODIUM
     Indication: COR PULMONALE CHRONIC
     Dosage: 20 NG/KG/MIN, CONCENTRATION 30,000 NG/ML AT 94 ML/DAY, VIAL STRENGTH 1.5 MGCONTINUOUS
     Route: 042
     Dates: start: 20080919
  13. FLOLAN [Suspect]
     Active Substance: EPOPROSTENOL SODIUM
     Dosage: 20 DF, CO
     Route: 042
  14. LETAIRIS [Concomitant]
     Active Substance: AMBRISENTAN
  15. FLOLAN [Suspect]
     Active Substance: EPOPROSTENOL SODIUM
     Dosage: 20 DF, CO
  16. FLOLAN [Suspect]
     Active Substance: EPOPROSTENOL SODIUM
     Dosage: UNK

REACTIONS (28)
  - Pancreatitis chronic [Unknown]
  - Vomiting [Unknown]
  - Pain [Not Recovered/Not Resolved]
  - Infusion site infection [Unknown]
  - Nausea [Unknown]
  - Viral upper respiratory tract infection [Unknown]
  - Catheter site infection [Unknown]
  - Weight fluctuation [Unknown]
  - Catheter site pain [Not Recovered/Not Resolved]
  - Asthenia [Unknown]
  - Surgery [Unknown]
  - Gastric infection [Unknown]
  - Nocturnal dyspnoea [Unknown]
  - Influenza [Unknown]
  - Catheter site haemorrhage [Unknown]
  - Device related infection [Unknown]
  - Blood potassium decreased [Unknown]
  - Loss of consciousness [Unknown]
  - Ankle fracture [Unknown]
  - Catheter site discharge [Unknown]
  - Complication associated with device [Not Recovered/Not Resolved]
  - Dizziness [Unknown]
  - Syncope [Unknown]
  - Hospitalisation [Unknown]
  - Hospitalisation [Recovered/Resolved]
  - Clostridium difficile infection [Unknown]
  - Pancreatic disorder [Unknown]
  - Hernia repair [Unknown]

NARRATIVE: CASE EVENT DATE: 20120405
